FAERS Safety Report 7938193-1 (Version None)
Quarter: 2011Q4

REPORT INFORMATION
  Report Type: 
  Country: None (occurrence: None)
  Receive Date: 20111123
  Receipt Date: 20110926
  Transmission Date: 20120403
  Serious: No
  Sender: FDA-Public Use
  Company Number: US-BRISTOL-MYERS SQUIBB COMPANY-16095549

PATIENT
  Age: 68 Year
  Sex: Female

DRUGS (9)
  1. AMLODIPINE [Concomitant]
  2. OMEPRAZOLE [Concomitant]
  3. SIMVASTATIN [Concomitant]
  4. LISINOPRIL [Concomitant]
  5. MAGNESIUM OXIDE [Concomitant]
  6. ASPIRIN [Concomitant]
  7. ONGLYZA [Suspect]
     Dosage: SAMPLE PACK OF 2.5MG GIVEN
     Dates: start: 20110908
  8. GLIMEPIRIDE [Concomitant]
  9. METOPROLOL TARTRATE [Concomitant]

REACTIONS (3)
  - RASH [None]
  - PRURITUS [None]
  - NERVOUSNESS [None]
